FAERS Safety Report 8997543 (Version 3)
Quarter: 2013Q2

REPORT INFORMATION
  Report Type: Spontaneous
  Country: US (occurrence: US)
  Receive Date: 20130104
  Receipt Date: 20130619
  Transmission Date: 20140414
  Serious: Yes (Hospitalization, Disabling, Other)
  Sender: FDA-Public Use
  Company Number: US-009507513-1210USA014642

PATIENT
  Sex: Female

DRUGS (1)
  1. FOSAMAX [Suspect]
     Indication: OSTEOPOROSIS
     Dosage: 70 MG, UNK
     Route: 048
     Dates: start: 2002, end: 2009

REACTIONS (25)
  - Basedow^s disease [Recovered/Resolved]
  - Knee operation [Unknown]
  - Osteoarthritis [Unknown]
  - Road traffic accident [Unknown]
  - Intervertebral disc degeneration [Unknown]
  - Facet joint syndrome [Unknown]
  - Cervical spinal stenosis [Unknown]
  - Nausea [Unknown]
  - Drug ineffective [Unknown]
  - Constipation [Unknown]
  - Neck pain [Unknown]
  - Femur fracture [Unknown]
  - Intramedullary rod insertion [Unknown]
  - Femur fracture [Unknown]
  - Limb operation [Unknown]
  - Tibia fracture [Unknown]
  - Open reduction of fracture [Unknown]
  - Fracture nonunion [Unknown]
  - Osteopenia [Unknown]
  - Osteoarthritis [Unknown]
  - Arthropathy [Unknown]
  - Coronary artery disease [Unknown]
  - Ventricular tachycardia [Recovered/Resolved]
  - Coronary arterial stent insertion [Unknown]
  - Toxic nodular goitre [Unknown]
